FAERS Safety Report 11617371 (Version 4)
Quarter: 2016Q2

REPORT INFORMATION
  Report Type: Spontaneous
  Country: US (occurrence: US)
  Receive Date: 20151009
  Receipt Date: 20160525
  Transmission Date: 20160815
  Serious: Yes (Life-Threatening, Hospitalization, Other)
  Sender: FDA-Public Use
  Company Number: US-ELI_LILLY_AND_COMPANY-US201510001806

PATIENT
  Age: 50 Year
  Sex: Female

DRUGS (16)
  1. EPIDUO [Concomitant]
     Active Substance: ADAPALENE\BENZOYL PEROXIDE
     Indication: ACNE
     Dosage: UNK UNK, UNKNOWN
     Route: 061
     Dates: start: 20060210
  2. NIZORAL [Concomitant]
     Active Substance: KETOCONAZOLE
     Indication: SEBORRHOEIC DERMATITIS
     Dosage: 2 %, UNKNOWN
     Route: 065
     Dates: start: 20060210
  3. NIZORAL [Concomitant]
     Active Substance: KETOCONAZOLE
     Indication: DANDRUFF
     Dosage: 2 %, UNKNOWN
     Route: 065
     Dates: start: 201401
  4. IRON [Concomitant]
     Active Substance: IRON
  5. FORTEO [Suspect]
     Active Substance: TERIPARATIDE
     Dosage: UNK, QD
     Route: 065
  6. FORTEO [Suspect]
     Active Substance: TERIPARATIDE
     Dosage: UNK, QD
     Route: 065
  7. FORTEO [Suspect]
     Active Substance: TERIPARATIDE
     Indication: OSTEOPOROSIS
     Dosage: UNK, QD
     Route: 065
     Dates: start: 20140829
  8. PERCOCET                           /00446701/ [Suspect]
     Active Substance: ACETAMINOPHEN\OXYCODONE HYDROCHLORIDE\OXYCODONE TEREPHTHALATE
     Indication: PAIN
     Dosage: UNK, UNKNOWN
     Route: 065
  9. XANAX [Concomitant]
     Active Substance: ALPRAZOLAM
     Indication: ANXIETY
     Dosage: 3 MG, UNKNOWN
     Dates: start: 20151110
  10. ROZEREM [Concomitant]
     Active Substance: RAMELTEON
     Indication: INSOMNIA
     Dosage: UNK, UNKNOWN
     Route: 065
     Dates: start: 20060210
  11. LEVORA [Suspect]
     Active Substance: ETHINYL ESTRADIOL\LEVONORGESTREL
     Indication: CONTRACEPTION
     Dosage: UNK, QD
     Route: 065
     Dates: end: 20151111
  12. XANAX [Concomitant]
     Active Substance: ALPRAZOLAM
     Indication: INSOMNIA
     Dosage: 1 MG, UNKNOWN
     Dates: start: 20060210, end: 20151110
  13. SILVER SULFADIAZINE. [Concomitant]
     Active Substance: SILVER SULFADIAZINE
     Indication: ANTIBIOTIC THERAPY
     Dosage: UNK, UNKNOWN
     Route: 061
     Dates: start: 20151111
  14. MELATONIN [Concomitant]
     Active Substance: MELATONIN
     Indication: INSOMNIA
     Dosage: UNK, UNKNOWN
     Route: 065
     Dates: start: 20060210
  15. VITAMIN D [Concomitant]
     Active Substance: CHOLECALCIFEROL
  16. BABY ASPIRIN [Concomitant]
     Active Substance: ASPIRIN

REACTIONS (23)
  - Cervix carcinoma [Recovered/Resolved]
  - Hepatic adenoma [Recovering/Resolving]
  - Onychalgia [Recovered/Resolved]
  - Motion sickness [Unknown]
  - Anxiety [Unknown]
  - Drug dose omission [Unknown]
  - Drug dose omission [Unknown]
  - Onychomycosis [Recovered/Resolved]
  - Endometrial atrophy [Unknown]
  - Weight decreased [Unknown]
  - Haemorrhage [Unknown]
  - Musculoskeletal chest pain [Not Recovered/Not Resolved]
  - Insomnia [Recovering/Resolving]
  - Nausea [Unknown]
  - Vomiting [Recovered/Resolved]
  - Bedridden [Unknown]
  - Arthropathy [Recovering/Resolving]
  - Vomiting [Unknown]
  - Drug dose omission [Unknown]
  - Gait disturbance [Recovering/Resolving]
  - Dehydration [Unknown]
  - Human papilloma virus test positive [Unknown]
  - Nail infection [Recovered/Resolved]

NARRATIVE: CASE EVENT DATE: 201408
